FAERS Safety Report 6544732-8 (Version None)
Quarter: 2010Q1

REPORT INFORMATION
  Report Type: 
  Country: None (occurrence: None)
  Receive Date: 20100121
  Receipt Date: 20100111
  Transmission Date: 20100710
  Serious: Yes (Other)
  Sender: FDA-Public Use
  Company Number: US-JNJFOC-20100104877

PATIENT
  Sex: Male

DRUGS (4)
  1. DURAGESIC-100 [Suspect]
     Indication: BACK PAIN
     Route: 062
  2. DURAGESIC-100 [Suspect]
     Route: 062
  3. MORPHINE [Suspect]
     Indication: BACK PAIN
     Route: 048
  4. LOTREL [Concomitant]
     Indication: HYPERTENSION
     Route: 048

REACTIONS (8)
  - BEDRIDDEN [None]
  - DRUG INEFFECTIVE [None]
  - FEELING JITTERY [None]
  - HEADACHE [None]
  - INSOMNIA [None]
  - NERVE INJURY [None]
  - PAIN [None]
  - PRODUCT QUALITY ISSUE [None]
